FAERS Safety Report 5236795-7 (Version None)
Quarter: 2007Q1

REPORT INFORMATION
  Report Type: 
  Country: None (occurrence: None)
  Receive Date: 20061208
  Receipt Date: 20050728
  Transmission Date: 20070707
  Serious: Yes (Other)
  Sender: FDA-Public Use
  Company Number: 2005UW11185

PATIENT
  Sex: Female

DRUGS (9)
  1. CRESTOR [Suspect]
     Dosage: 10 MG PO
     Route: 048
     Dates: start: 20041117, end: 20050605
  2. CAPTOPRIL [Concomitant]
  3. PREMARIN [Concomitant]
  4. COREG [Concomitant]
  5. GLUCOPHAGE [Concomitant]
  6. GLYBURIDE [Concomitant]
  7. ALDACTONE [Concomitant]
  8. LASIX [Concomitant]
  9. ACETYLSALICYLIC ACID SRT [Concomitant]

REACTIONS (2)
  - PROTEINURIA [None]
  - URINE ALBUMIN/CREATININE RATIO INCREASED [None]
